FAERS Safety Report 16564669 (Version 1)
Quarter: 2019Q3

REPORT INFORMATION
  Report Type: Spontaneous
  Country: GR (occurrence: GR)
  Receive Date: 20190712
  Receipt Date: 20190712
  Transmission Date: 20191004
  Serious: Yes (Other)
  Sender: FDA-Public Use
  Company Number: GR-ROCHE-2352768

PATIENT
  Age: 56 Year
  Sex: Male

DRUGS (1)
  1. RANIBIZUMAB. [Suspect]
     Active Substance: RANIBIZUMAB
     Indication: MACULAR OEDEMA
     Dosage: 3 DF, UNK
     Route: 047

REACTIONS (2)
  - Macular oedema [Recovering/Resolving]
  - Disease recurrence [Recovering/Resolving]
